FAERS Safety Report 9900170 (Version 2)
Quarter: 2014Q1

REPORT INFORMATION
  Report Type: Spontaneous
  Country: US (occurrence: US)
  Receive Date: 20140214
  Receipt Date: 20140214
  Transmission Date: 20141002
  Serious: Yes (Death, Hospitalization)
  Sender: FDA-Public Use
  Company Number: US-TMC-CABO-14003890

PATIENT
  Age: 58 Year
  Sex: Male

DRUGS (9)
  1. COMETRIQ [Suspect]
     Indication: THYROID CANCER
     Dosage: 140 MG, QD
     Route: 048
     Dates: start: 20130503, end: 2013
  2. COMETRIQ [Suspect]
     Dosage: 100 MG, QD
     Route: 048
     Dates: start: 2013, end: 20131213
  3. SYNTHROID [Concomitant]
  4. IMODIUM [Concomitant]
  5. VITAMIN D [Concomitant]
  6. ZYRTEC [Concomitant]
  7. CLARITIN [Concomitant]
  8. LOMOTIL [Concomitant]
  9. OXYCODONE [Concomitant]

REACTIONS (13)
  - Dyspnoea [Recovering/Resolving]
  - Hypoxia [Recovering/Resolving]
  - Malignant neoplasm progression [Fatal]
  - Failure to thrive [Recovering/Resolving]
  - Back pain [Recovering/Resolving]
  - Pneumonia [Recovering/Resolving]
  - Pancreatitis acute [Recovering/Resolving]
  - Hepatic function abnormal [Unknown]
  - Diarrhoea [Unknown]
  - Weight decreased [Unknown]
  - Decreased appetite [Recovering/Resolving]
  - Fatigue [Recovering/Resolving]
  - Pain in extremity [Recovering/Resolving]
